FAERS Safety Report 9798955 (Version 1)
Quarter: 2014Q1

REPORT INFORMATION
  Report Type: Spontaneous
  Country: FR (occurrence: FR)
  Receive Date: 20140106
  Receipt Date: 20140106
  Transmission Date: 20141002
  Serious: Yes (Hospitalization)
  Sender: FDA-Public Use
  Company Number: FR-B.I. PHARMACEUTICALS,INC./RIDGEFIELD-2014-BI-00121FF

PATIENT
  Age: 82 Year
  Sex: Female

DRUGS (8)
  1. PRADAXA [Suspect]
     Indication: ATRIAL FIBRILLATION
     Dosage: 220 MG
     Route: 048
     Dates: start: 201202, end: 20131119
  2. ATACAND [Concomitant]
     Dosage: 1 ANZ
  3. FUROSEMIDE [Concomitant]
  4. BISOPROLOL [Concomitant]
  5. BISOPROLOL [Concomitant]
  6. LOXEN LP [Concomitant]
  7. DOLIPRANE [Concomitant]
     Indication: PAIN
  8. GINKOR FORT [Concomitant]

REACTIONS (2)
  - Rectal haemorrhage [Recovered/Resolved]
  - Anaemia [Not Recovered/Not Resolved]
